FAERS Safety Report 5010337-3 (Version None)
Quarter: 2006Q2

REPORT INFORMATION
  Report Type: 
  Country: None (occurrence: None)
  Receive Date: 20060404
  Receipt Date: 20051107
  Transmission Date: 20061013
  Serious: Yes (Death)
  Sender: FDA-Public Use
  Company Number: USA050392993

PATIENT
  Age: 72 Year
  Sex: Male
  Weight: 106.4 kg

DRUGS (3)
  1. CYMBALTA [Suspect]
     Indication: MAJOR DEPRESSION
     Dosage: 30 MG, DAILY (1/D)
  2. GEODON [Concomitant]
  3. AMBIEN [Concomitant]

REACTIONS (1)
  - COMPLETED SUICIDE [None]
